FAERS Safety Report 5062735-X (Version None)
Quarter: 2006Q3

REPORT INFORMATION
  Report Type: 
  Country: None (occurrence: None)
  Receive Date: 20060726
  Receipt Date: 20060704
  Transmission Date: 20061208
  Serious: Yes (Death)
  Sender: FDA-Public Use
  Company Number: DE-BOEHRINGER INGELHEIM PHARMACEUTICALS, INC.-2006-DE-03519DE

PATIENT
  Age: 64 Year
  Sex: Male
  Weight: 69 kg

DRUGS (9)
  1. SPIRIVA [Suspect]
     Indication: CHRONIC OBSTRUCTIVE PULMONARY DISEASE
     Route: 055
     Dates: start: 20060102
  2. SPIRIVA [Suspect]
     Indication: EMPHYSEMA
  3. TOREM 10 [Concomitant]
  4. KINZALKOMB [Concomitant]
  5. LISINOPRIL [Concomitant]
  6. ACC LONG [Concomitant]
  7. BETA-2-AGONIST SHORT-ACTING [Concomitant]
     Indication: RESPIRATORY THERAPY
  8. BETA-2-AGONIST LONG-ACTING [+ CORTICOID INHALATIVE] [Concomitant]
     Indication: RESPIRATORY THERAPY
  9. [BETA-2-AGONIST LONG-ACTING] + CORTICOID INHALATIVE [Concomitant]
     Route: 055

REACTIONS (2)
  - EMPHYSEMA [None]
  - PNEUMOTHORAX [None]
